FAERS Safety Report 5162040-7 (Version None)
Quarter: 2006Q4

REPORT INFORMATION
  Report Type: 
  Country: None (occurrence: None)
  Receive Date: 20061121
  Receipt Date: 20061114
  Transmission Date: 20070319
  Serious: Yes (Life-Threatening)
  Sender: FDA-Public Use
  Company Number: 06H-083-0311149-00

PATIENT
  Age: 48 Year
  Sex: Female

DRUGS (1)
  1. DOBUTAMINE HCL [Suspect]
     Indication: STRESS ECHOCARDIOGRAM
     Dosage: 10-40 UG/KG/MIN, INCR DOSE EVERY 3 MIN, INFUSION

REACTIONS (6)
  - ACCELERATED IDIOVENTRICULAR RHYTHM [None]
  - AORTIC VALVE INCOMPETENCE [None]
  - CARDIAC ARREST [None]
  - HYPOVOLAEMIA [None]
  - MITRAL VALVE INCOMPETENCE [None]
  - MITRAL VALVE SCLEROSIS [None]
